FAERS Safety Report 9417479 (Version 2)
Quarter: 2013Q4

REPORT INFORMATION
  Report Type: Spontaneous
  Country: US (occurrence: US)
  Receive Date: 20130724
  Receipt Date: 20131022
  Transmission Date: 20140711
  Serious: No
  Sender: FDA-Public Use
  Company Number: US-BRISTOL-MYERS SQUIBB COMPANY-18920116

PATIENT
  Age: 79 Year
  Sex: Male
  Weight: 68.03 kg

DRUGS (2)
  1. ELIQUIS [Suspect]
     Dates: start: 20130518
  2. DIGOXIN [Concomitant]

REACTIONS (4)
  - Erythema [Unknown]
  - Pruritus [Unknown]
  - Burning sensation [Unknown]
  - Headache [Unknown]
